FAERS Safety Report 17167955 (Version 2)
Quarter: 2020Q1

REPORT INFORMATION
  Report Type: Spontaneous
  Country: IT (occurrence: IT)
  Receive Date: 20191218
  Receipt Date: 20200220
  Transmission Date: 20200409
  Serious: Yes (Other)
  Sender: FDA-Public Use
  Company Number: IT-AUROBINDO-AUR-APL-2019-105172

PATIENT
  Age: 59 Year
  Sex: Female
  Weight: 70 kg

DRUGS (1)
  1. MEROPENEM POWDER FOR SOLUTION FOR INFUSION [Suspect]
     Active Substance: MEROPENEM
     Indication: UROSEPSIS
     Dosage: 2 GRAM, ONCE A DAY
     Route: 042
     Dates: start: 20191114, end: 20191116

REACTIONS (2)
  - Neutropenia [Recovered/Resolved]
  - Thrombocytopenia [Recovered/Resolved]

NARRATIVE: CASE EVENT DATE: 20191115
